FAERS Safety Report 14977633 (Version 1)
Quarter: 2018Q2

REPORT INFORMATION
  Report Type: Spontaneous
  Country: US (occurrence: US)
  Receive Date: 20180606
  Receipt Date: 20180606
  Transmission Date: 20180711
  Serious: No
  Sender: FDA-Public Use
  Company Number: US-TEVA-792919ACC

PATIENT
  Age: 83 Year
  Sex: Female

DRUGS (1)
  1. MIMVEY [Suspect]
     Active Substance: ESTRADIOL\NORETHINDRONE ACETATE
     Indication: HORMONE REPLACEMENT THERAPY
     Dosage: 1 MG/0.5 MG
     Dates: start: 20170618

REACTIONS (2)
  - Vaginal haemorrhage [Recovered/Resolved]
  - Night sweats [Not Recovered/Not Resolved]

NARRATIVE: CASE EVENT DATE: 20170706
